FAERS Safety Report 6751879-X (Version None)
Quarter: 2010Q2

REPORT INFORMATION
  Report Type: 
  Country: None (occurrence: None)
  Receive Date: 20100526
  Receipt Date: 20100323
  Transmission Date: 20101027
  Serious: No
  Sender: FDA-Public Use
  Company Number: 306122

PATIENT
  Age: 65 Year
  Sex: Female

DRUGS (3)
  1. VICTOZA [Suspect]
     Indication: INSULIN-REQUIRING TYPE 2 DIABETES MELLITUS
     Dosage: 0.6 LU, UNK, SUBCUTANEOUS
     Route: 058
     Dates: start: 20100319
  2. LEVEMIR [Concomitant]
  3. ACTOS [Concomitant]

REACTIONS (6)
  - ARTHRALGIA [None]
  - BLOOD GLUCOSE INCREASED [None]
  - DECREASED APPETITE [None]
  - DYSARTHRIA [None]
  - HEAD DISCOMFORT [None]
  - WEIGHT DECREASED [None]
